FAERS Safety Report 19293228 (Version 1)
Quarter: 2021Q2

REPORT INFORMATION
  Report Type: Spontaneous
  Country: US (occurrence: US)
  Receive Date: 20210524
  Receipt Date: 20210524
  Transmission Date: 20210717
  Serious: No
  Sender: FDA-Public Use
  Company Number: US-TARO-2020TAR01583

PATIENT
  Sex: Female

DRUGS (1)
  1. TERCONAZOLE VAGINAL CREAM (UNKNOWN) [Suspect]
     Active Substance: TERCONAZOLE
     Indication: VULVOVAGINAL MYCOTIC INFECTION
     Dosage: QD, EVERY NIGHT FOR 7 WEEKS, UNSURE IF IT IS THE 0.8% OR 0.4% TERCONAZOLE VAGINAL CREAM (TARO BRAND
     Route: 067
     Dates: start: 202008

REACTIONS (5)
  - Off label use [Unknown]
  - Vulvovaginal dryness [Not Recovered/Not Resolved]
  - Abdominal pain [Not Recovered/Not Resolved]
  - Nausea [Not Recovered/Not Resolved]
  - pH body fluid abnormal [Not Recovered/Not Resolved]
